FAERS Safety Report 4570091-6 (Version None)
Quarter: 2005Q1

REPORT INFORMATION
  Report Type: 
  Country: None (occurrence: None)
  Receive Date: 20050131
  Receipt Date: 20050113
  Transmission Date: 20050727
  Serious: Yes (Life-Threatening, Disabling)
  Sender: FDA-Public Use
  Company Number: 430020L04JPN

PATIENT
  Age: 2 Year
  Sex: Male

DRUGS (9)
  1. NOVANTRONE [Suspect]
     Indication: ACUTE MONOCYTIC LEUKAEMIA
     Dosage: SEE IMAGE
     Route: 042
     Dates: start: 19900426, end: 19900427
  2. NOVANTRONE [Suspect]
     Indication: ACUTE MONOCYTIC LEUKAEMIA
     Dosage: SEE IMAGE
     Route: 042
     Dates: start: 19900614, end: 19900618
  3. NOVANTRONE [Suspect]
     Indication: ACUTE MONOCYTIC LEUKAEMIA
     Dosage: SEE IMAGE
     Route: 042
     Dates: start: 19900728, end: 19900729
  4. ACLARUBICIN HYDROCHLORIDE [Suspect]
     Indication: ACUTE MONOCYTIC LEUKAEMIA
     Dosage: 8 MG, DAYS, INTRAVENOUS
     Route: 042
     Dates: start: 19900522, end: 19900531
  5. DAUNORUBICIN HCL [Suspect]
     Indication: ACUTE MONOCYTIC LEUKAEMIA
     Dosage: 26 MG, INTRAVENOUS
     Route: 042
     Dates: start: 19900614, end: 19900616
  6. CYTARABINE [Concomitant]
  7. ETOPOSIDE [Concomitant]
  8. BUSULFAN [Concomitant]
  9. ETOPOSIDE [Concomitant]

REACTIONS (5)
  - BONE MARROW DEPRESSION [None]
  - CARDIAC FAILURE [None]
  - CARDIOMEGALY [None]
  - CARDIOMYOPATHY [None]
  - PNEUMONIA ASPERGILLUS [None]
